FAERS Safety Report 22202243 (Version 3)
Quarter: 2024Q1

REPORT INFORMATION
  Report Type: Report from Study
  Country: CA (occurrence: CA)
  Receive Date: 20230412
  Receipt Date: 20240304
  Transmission Date: 20240410
  Serious: Yes (Other)
  Sender: FDA-Public Use
  Company Number: CA-OTSUKA-2021_030156

PATIENT
  Age: 82 Year
  Sex: Female

DRUGS (1)
  1. CEDAZURIDINE\DECITABINE [Suspect]
     Active Substance: CEDAZURIDINE\DECITABINE
     Indication: Myelodysplastic syndrome
     Dosage: 1 DF(35 MG DECITABINE AND 100 MG CEDAZURIDINE), QD (ON MONDAY, WEDNESDAY, FRIDAY) OF A 28-DAY CYCLE
     Route: 048
     Dates: start: 20210621

REACTIONS (6)
  - Transfusion [Unknown]
  - Full blood count abnormal [Unknown]
  - General physical health deterioration [Unknown]
  - Haemoglobin decreased [Unknown]
  - Inappropriate schedule of product administration [Unknown]
  - Therapy cessation [Unknown]

NARRATIVE: CASE EVENT DATE: 20210621
